FAERS Safety Report 16393973 (Version 1)
Quarter: 2019Q2

REPORT INFORMATION
  Report Type: Spontaneous
  Country: CN (occurrence: CN)
  Receive Date: 20190605
  Receipt Date: 20190605
  Transmission Date: 20190711
  Serious: Yes (Hospitalization, Other)
  Sender: FDA-Public Use
  Company Number: CN-PFIZER INC-2019234518

PATIENT
  Age: 61 Year
  Sex: Female
  Weight: 67 kg

DRUGS (4)
  1. DEXTROSE IN WATER [Concomitant]
     Active Substance: DEXTROSE\WATER
     Dosage: 500 ML, UNK
     Dates: start: 20190501, end: 20190501
  2. ANZATAX (PACLITAXEL) [Suspect]
     Active Substance: PACLITAXEL
     Indication: OVARIAN CANCER
     Dosage: 210 MG, 1X/DAY
     Route: 041
     Dates: start: 20190501, end: 20190501
  3. NORMAL SALINE [Concomitant]
     Active Substance: SODIUM CHLORIDE
     Dosage: 500 ML, UNK
     Route: 041
     Dates: start: 20190501, end: 20190501
  4. PARAPLATIN [Suspect]
     Active Substance: CARBOPLATIN
     Indication: OVARIAN CANCER
     Dosage: 600 MG, 1X/DAY
     Route: 041
     Dates: start: 20190501, end: 20190501

REACTIONS (5)
  - Dyspnoea [Recovering/Resolving]
  - Dizziness [Recovering/Resolving]
  - Hyperhidrosis [Recovering/Resolving]
  - Anaphylactic shock [Recovering/Resolving]
  - Hypotension [Recovering/Resolving]

NARRATIVE: CASE EVENT DATE: 20190501
